FAERS Safety Report 6657878-0 (Version None)
Quarter: 2010Q1

REPORT INFORMATION
  Report Type: 
  Country: None (occurrence: None)
  Receive Date: 20100330
  Receipt Date: 20100315
  Transmission Date: 20100710
  Serious: Yes (Disabling, Other)
  Sender: FDA-Public Use
  Company Number: DE-GENENTECH-282920

PATIENT
  Sex: Female

DRUGS (3)
  1. LUCENTIS [Suspect]
     Indication: CHOROIDAL NEOVASCULARISATION
     Dosage: UNK
     Route: 031
     Dates: start: 20080526
  2. LUCENTIS [Suspect]
     Dosage: UNK
     Route: 031
     Dates: start: 20081208
  3. FLUORESCEIN SODIUM [Concomitant]
     Indication: DRUG USE FOR UNKNOWN INDICATION

REACTIONS (2)
  - RETINAL DETACHMENT [None]
  - VISUAL ACUITY REDUCED [None]
